FAERS Safety Report 5802521-3 (Version None)
Quarter: 2008Q2

REPORT INFORMATION
  Report Type: 
  Country: None (occurrence: None)
  Receive Date: 20080627
  Receipt Date: 20080421
  Transmission Date: 20081010
  Serious: Yes (Other)
  Sender: FDA-Public Use
  Company Number: CTI_00963_2008

PATIENT
  Sex: Female

DRUGS (4)
  1. ZYFLO CR [Suspect]
     Indication: DRUG USE FOR UNKNOWN INDICATION
     Dosage: (DF)
     Dates: start: 20080301
  2. ZYFLO [Suspect]
     Indication: ASTHMA
     Dosage: (DF)
  3. ZYFLO [Suspect]
     Indication: BLOOD IMMUNOGLOBULIN E
     Dosage: (DF)
  4. ZYFLO [Suspect]
     Indication: EYE PRURITUS
     Dosage: (DF)

REACTIONS (3)
  - DRUG INEFFECTIVE [None]
  - LIVER FUNCTION TEST [None]
  - PHARMACEUTICAL PRODUCT COMPLAINT [None]
